FAERS Safety Report 10209206 (Version 1)
Quarter: 2014Q2

REPORT INFORMATION
  Report Type: Spontaneous
  Country: US (occurrence: US)
  Receive Date: 20140530
  Receipt Date: 20140530
  Transmission Date: 20141212
  Serious: No
  Sender: FDA-Public Use
  Company Number: US-BAXTER-2014BAX024608

PATIENT
  Age: 55 Year
  Sex: Female

DRUGS (1)
  1. CLINIMIX? -SULFITE-FREE (AMINO ACID IN DEXTROSE) INJECTIONS [Suspect]
     Indication: PARENTERAL NUTRITION
     Route: 065
     Dates: start: 20140514, end: 20140514

REACTIONS (2)
  - Wrong technique in drug usage process [Recovered/Resolved]
  - No adverse event [Recovered/Resolved]
